FAERS Safety Report 9936036 (Version 1)
Quarter: 2014Q1

REPORT INFORMATION
  Report Type: Spontaneous
  Country: US (occurrence: US)
  Receive Date: 20140228
  Receipt Date: 20140228
  Transmission Date: 20141002
  Serious: No
  Sender: FDA-Public Use
  Company Number: US-AMGEN-USASP2013078389

PATIENT
  Age: 63 Year
  Sex: Female

DRUGS (2)
  1. ENBREL [Suspect]
     Indication: ANKYLOSING SPONDYLITIS
     Dosage: 25 MG, QWK
     Route: 065
     Dates: start: 20130530
  2. MEDROL                             /00049601/ [Concomitant]
     Dosage: 6 MG, QD

REACTIONS (4)
  - Myositis [Recovered/Resolved]
  - Vasculitis [Recovered/Resolved]
  - Skin infection [Recovered/Resolved]
  - Sinusitis [Recovered/Resolved]
